FAERS Safety Report 12883941 (Version 2)
Quarter: 2016Q4

REPORT INFORMATION
  Report Type: Report from Study
  Country: US (occurrence: US)
  Receive Date: 20161026
  Receipt Date: 20161105
  Transmission Date: 20170207
  Serious: Yes (Other)
  Sender: FDA-Public Use
  Company Number: US-AMGEN-USASL2016145163

PATIENT
  Age: 82 Year
  Sex: Female

DRUGS (1)
  1. PROLIA [Suspect]
     Active Substance: DENOSUMAB
     Indication: OSTEOPOROSIS POSTMENOPAUSAL
     Dosage: UNK
     Route: 065
     Dates: start: 2014

REACTIONS (11)
  - Intestinal obstruction [Unknown]
  - Anaemia [Recovering/Resolving]
  - Drug dose omission [Unknown]
  - Arthralgia [Unknown]
  - Pain [Unknown]
  - Myalgia [Unknown]
  - Hiatus hernia [Unknown]
  - Parathyroidectomy [Unknown]
  - Bone pain [Unknown]
  - Arthritis [Unknown]
  - Impaired work ability [Unknown]

NARRATIVE: CASE EVENT DATE: 2015
